FAERS Safety Report 4463847-1 (Version None)
Quarter: 2004Q3

REPORT INFORMATION
  Report Type: 
  Country: None (occurrence: None)
  Receive Date: 20040926
  Receipt Date: 20040922
  Transmission Date: 20050211
  Serious: Yes (Life-Threatening)
  Sender: FDA-Public Use
  Company Number: 2004AC00364

PATIENT
  Age: 74 Year
  Sex: Male
  Weight: 96 kg

DRUGS (2)
  1. CASODEX [Suspect]
     Indication: PROSTATE CANCER
     Dosage: 50 MG DAILY PO
     Route: 048
     Dates: start: 20030211
  2. SUPREFACT [Suspect]
     Indication: PROSTATE CANCER
     Dosage: 9.9 MG SQ
     Route: 058
     Dates: start: 20030211

REACTIONS (2)
  - GLOMERULONEPHRITIS [None]
  - OEDEMA PERIPHERAL [None]
